FAERS Safety Report 11751090 (Version 2)
Quarter: 2015Q4

REPORT INFORMATION
  Report Type: Spontaneous
  Country: FR (occurrence: FR)
  Receive Date: 20151118
  Receipt Date: 20151204
  Transmission Date: 20160304
  Serious: Yes (Hospitalization, Other)
  Sender: FDA-Public Use
  Company Number: FR-PFIZER INC-2015385744

PATIENT
  Age: 38 Year
  Sex: Female

DRUGS (22)
  1. ZOLPIDEM [Concomitant]
     Active Substance: ZOLPIDEM\ZOLPIDEM TARTRATE
     Dosage: 1 DF, 1X/DAY AT BED TIME
     Route: 048
     Dates: start: 201509
  2. IMOVANE [Concomitant]
     Active Substance: ZOPICLONE
     Dosage: 7.5 MG, 1X/DAY
     Route: 048
     Dates: start: 201208
  3. EFFEXOR [Suspect]
     Active Substance: VENLAFAXINE HYDROCHLORIDE
     Dosage: 37.5 MG, 2X/DAY
     Route: 048
     Dates: start: 2009, end: 201301
  4. ATARAX [Concomitant]
     Active Substance: HYDROXYZINE\HYDROXYZINE HYDROCHLORIDE
     Dosage: 6.25 MG, DAILY
     Route: 048
     Dates: start: 1995
  5. LEXOMIL [Concomitant]
     Active Substance: BROMAZEPAM
     Dosage: UNK
     Route: 048
     Dates: start: 1995
  6. RIVOTRIL [Concomitant]
     Active Substance: CLONAZEPAM
     Dosage: 30 GTT, 1X/DAY,IN THE EVENING
     Route: 048
     Dates: start: 201105
  7. MYOLASTAN [Concomitant]
     Active Substance: TETRAZEPAM
     Dosage: 1 DF, 3X/DAY
     Route: 048
     Dates: start: 1995
  8. LEDERFOLINE [Concomitant]
     Active Substance: LEUCOVORIN CALCIUM
     Dosage: UNK
     Route: 048
     Dates: start: 1995
  9. ZOLPIDEM [Concomitant]
     Active Substance: ZOLPIDEM\ZOLPIDEM TARTRATE
     Dosage: 1 DF, 1X/DAY,AT BED TIME
     Route: 048
     Dates: start: 201308
  10. CONTRAMAL [Concomitant]
     Active Substance: TRAMADOL HYDROCHLORIDE
     Dosage: 1 DF, 2X/DAY
     Route: 048
     Dates: start: 201105
  11. FRAXIPARINE (NADROPARIN CALCIUM) [Concomitant]
     Active Substance: NADROPARIN CALCIUM
     Dosage: 0.3 ML, DAILY,ON MORNING
     Route: 058
     Dates: start: 1995
  12. ZOLPIDEM [Concomitant]
     Active Substance: ZOLPIDEM\ZOLPIDEM TARTRATE
     Dosage: 1 DF, 1X/DAY, AT BED TIME
     Route: 048
     Dates: start: 201105
  13. EQUANIL [Concomitant]
     Active Substance: MEPROBAMATE
     Dosage: UNK
     Route: 048
     Dates: start: 1995
  14. VOLTARENE [Concomitant]
     Active Substance: DICLOFENAC SODIUM
     Dosage: 75 MG, 1X/DAY
     Route: 048
     Dates: start: 201208
  15. PARACETAMOL CODEINE [Concomitant]
     Active Substance: ACETAMINOPHEN\CODEINE PHOSPHATE
     Dosage: UNK
     Route: 048
     Dates: start: 2005
  16. DAFALGAN [Concomitant]
     Active Substance: ACETAMINOPHEN
     Dosage: 3 DF, DAILY
     Route: 048
     Dates: start: 201105
  17. PARACETAMOL [Concomitant]
     Active Substance: ACETAMINOPHEN
     Dosage: UNK, AS NEEDED
     Route: 048
     Dates: start: 201208
  18. TEGRETOL [Concomitant]
     Active Substance: CARBAMAZEPINE
     Dosage: 1200 MG (200 MG X 6), DAILY
     Route: 048
     Dates: start: 1995
  19. VOLTARENE [Concomitant]
     Active Substance: DICLOFENAC SODIUM
     Dosage: UNK
     Route: 048
     Dates: start: 1995
  20. FUCIDINE /00065701/ [Concomitant]
     Active Substance: FUSIDIC ACID
     Dosage: 500 MG (250 MG X 2), UNK
     Route: 048
     Dates: start: 2005
  21. CYTOTEC [Concomitant]
     Active Substance: MISOPROSTOL
     Dosage: 2 DF, DAILY
     Route: 048
     Dates: start: 1995
  22. APRANAX /00256201/ [Concomitant]
     Active Substance: NAPROXEN
     Dosage: UNK
     Route: 048
     Dates: start: 2005

REACTIONS (1)
  - Cardiac valve disease [Not Recovered/Not Resolved]

NARRATIVE: CASE EVENT DATE: 201306
